FAERS Safety Report 25698945 (Version 2)
Quarter: 2025Q3

REPORT INFORMATION
  Report Type: Spontaneous
  Country: CA (occurrence: CA)
  Receive Date: 20250819
  Receipt Date: 20250821
  Transmission Date: 20251021
  Serious: Yes (Hospitalization, Other)
  Sender: CELLTRION
  Company Number: CA-CELLTRION INC.-2025CA027940

PATIENT

DRUGS (5)
  1. INFLIXIMAB [Suspect]
     Active Substance: INFLIXIMAB
     Indication: Crohn^s disease
     Route: 042
  2. INFLIXIMAB [Suspect]
     Active Substance: INFLIXIMAB
     Route: 042
  3. INFLIXIMAB [Suspect]
     Active Substance: INFLIXIMAB
     Route: 042
  4. INFLIXIMAB [Suspect]
     Active Substance: INFLIXIMAB
     Route: 042
  5. PREDNISONE [Concomitant]
     Active Substance: PREDNISONE

REACTIONS (16)
  - Crohn^s disease [Recovered/Resolved]
  - Drug level below therapeutic [Recovered/Resolved]
  - Feeling cold [Recovered/Resolved]
  - Feeling hot [Recovered/Resolved]
  - Ileostomy [Recovered/Resolved]
  - Pyoderma gangrenosum [Recovered/Resolved]
  - Small intestinal obstruction [Recovered/Resolved]
  - Throat tightness [Recovered/Resolved]
  - Wound [Recovered/Resolved]
  - Drug specific antibody present [Recovered/Resolved]
  - Dyspnoea [Recovered/Resolved]
  - Hyperhidrosis [Recovered/Resolved]
  - Infected skin ulcer [Recovered/Resolved]
  - Nausea [Recovered/Resolved]
  - Pelvic abscess [Recovered/Resolved]
  - Overdose [Unknown]
